FAERS Safety Report 10753334 (Version 4)
Quarter: 2015Q2

REPORT INFORMATION
  Report Type: Report from Study
  Country: JP (occurrence: JP)
  Receive Date: 20150130
  Receipt Date: 20150608
  Transmission Date: 20150821
  Serious: Yes (Other)
  Sender: FDA-Public Use
  Company Number: JP-TAKEDA-2014TUS013663

PATIENT
  Age: 83 Year
  Sex: Female
  Weight: 51.8 kg

DRUGS (29)
  1. FEBUXOSTAT. [Suspect]
     Active Substance: FEBUXOSTAT
     Indication: HYPERURICAEMIA
     Dosage: 10 MG, QD
     Route: 048
     Dates: start: 20130509
  2. BERBESOLONE F [Concomitant]
     Indication: EYE OPERATION
     Dosage: 1 GTT, QID
     Route: 047
     Dates: start: 20140205, end: 20140326
  3. HYALURONATE SODIUM [Concomitant]
     Active Substance: HYALURONATE SODIUM
     Indication: EYE OPERATION
     Dosage: FOUR TIMES/DAY
     Route: 047
     Dates: start: 20131212, end: 20140204
  4. CERCINE [Concomitant]
     Active Substance: DIAZEPAM
     Indication: EYE OPERATION
     Dosage: 2 MG, QD
     Route: 048
     Dates: start: 20140204, end: 20140204
  5. WARFARIN [Concomitant]
     Active Substance: WARFARIN
     Indication: ATRIAL FIBRILLATION
     Dosage: 2.5 MG, QD
     Route: 048
     Dates: start: 20110712
  6. NITROPEN [Concomitant]
     Active Substance: NITROGLYCERIN
     Indication: ANGINA PECTORIS
     Dosage: AS NEEDED
     Route: 060
     Dates: start: 20130801, end: 20130920
  7. THYRADIN S [Concomitant]
     Active Substance: LEVOTHYROXINE SODIUM
     Indication: HYPOTHYROIDISM
     Dosage: 25 ?G, QD
     Route: 048
     Dates: start: 20140509
  8. MOHRUS [Concomitant]
     Active Substance: KETOPROFEN
     Indication: BACK PAIN
     Dosage: AS NEEDED
     Route: 061
     Dates: start: 20110929, end: 20130920
  9. MOHRUS [Concomitant]
     Active Substance: KETOPROFEN
     Indication: BACK PAIN
  10. CRAVIT [Concomitant]
     Active Substance: LEVOFLOXACIN
     Indication: CONJUNCTIVITIS
     Dosage: 1 GTT, QID
     Route: 047
     Dates: start: 20130118
  11. FLUOROMETHOLONE. [Concomitant]
     Active Substance: FLUOROMETHOLONE
     Indication: EYE OPERATION
     Dosage: 1 GTT, TID
     Route: 047
     Dates: start: 20140326
  12. LOXONIN [Concomitant]
     Active Substance: LOXOPROFEN SODIUM
     Indication: BACK PAIN
     Dosage: AS NEEDED
     Route: 061
     Dates: start: 20131018
  13. ATROPINE                           /00002802/ [Concomitant]
     Indication: EYE OPERATION
     Dosage: 1 GTT, TID
     Route: 047
     Dates: start: 20140207, end: 20140326
  14. ETODOLAC. [Concomitant]
     Active Substance: ETODOLAC
     Indication: ANALGESIC THERAPY
     Dosage: 200 MG, QD
     Route: 048
     Dates: start: 20140210, end: 20140212
  15. SANDOL P [Concomitant]
     Indication: EYE OPERATION
     Dosage: 1 GTT, QD
     Route: 047
     Dates: start: 20140204, end: 20140204
  16. AMIODARONE HYDROCHLORIDE. [Concomitant]
     Active Substance: AMIODARONE HYDROCHLORIDE
     Indication: VENTRICULAR FIBRILLATION
     Dosage: 50 MG, BID
     Route: 048
     Dates: start: 20111027
  17. NEO-SYNESIN [Concomitant]
     Active Substance: PHENYLEPHRINE HYDROCHLORIDE
     Indication: EYE OPERATION
     Dosage: 1 GTT, QD
     Route: 031
     Dates: start: 20140204, end: 20140204
  18. NEVANAC [Concomitant]
     Active Substance: NEPAFENAC
     Indication: EYE OPERATION
     Dosage: 1 GTT, QD
     Route: 047
     Dates: start: 20140204, end: 20140204
  19. LOXONIN [Concomitant]
     Active Substance: LOXOPROFEN SODIUM
     Indication: BACK PAIN
  20. MOHRUS TAPE [Concomitant]
     Active Substance: KETOPROFEN
     Indication: BACK PAIN
     Dosage: AS NEEDED
     Route: 061
     Dates: start: 20130801
  21. LUPRAC [Concomitant]
     Active Substance: TORSEMIDE
     Indication: CARDIAC FAILURE
     Dosage: 8 MG, QD
     Route: 048
     Dates: start: 20121122
  22. FRANDOL [Concomitant]
     Active Substance: ISOSORBIDE DINITRATE
     Indication: ANGINA PECTORIS
     Dosage: 40 MG, QD
     Route: 062
     Dates: start: 20130120
  23. HYALEIN [Concomitant]
     Active Substance: HYALURONATE SODIUM
     Indication: OPHTHALMOLOGIC TREATMENT
     Dosage: 1 GTT, QID
     Route: 031
     Dates: start: 20130121, end: 20140213
  24. ARTIST [Concomitant]
     Active Substance: CARVEDILOL
     Indication: CARDIAC FAILURE
     Dosage: 2.5 MG, BID
     Route: 048
     Dates: start: 20130314
  25. ETODOLAC. [Concomitant]
     Active Substance: ETODOLAC
     Indication: ANALGESIC THERAPY
  26. CALONAL [Concomitant]
     Active Substance: ACETAMINOPHEN
     Indication: ANALGESIC THERAPY
     Dosage: AS NEEDED
     Route: 048
     Dates: start: 20140213, end: 20140214
  27. AZUNOL                             /00620101/ [Concomitant]
     Indication: GASTRITIS
     Dosage: THREE TIMES/DAY
     Route: 061
     Dates: start: 20131115
  28. FAMOTIDINE D [Concomitant]
     Active Substance: FAMOTIDINE
     Indication: GASTRITIS
     Dosage: 10 MG, QD
     Route: 048
     Dates: start: 20140131, end: 20140226
  29. CEFCAPENE PIVOXIL HYDROCHLORIDE [Concomitant]
     Active Substance: CEFCAPENE PIVOXIL HYDROCHLORIDE
     Indication: EYE OPERATION
     Dosage: 100 MG, BID
     Route: 048
     Dates: start: 20140204, end: 20140209

REACTIONS (2)
  - Blood thyroid stimulating hormone abnormal [Recovered/Resolved]
  - Tri-iodothyronine free abnormal [Recovered/Resolved]

NARRATIVE: CASE EVENT DATE: 20140605
